FAERS Safety Report 14356353 (Version 1)
Quarter: 2018Q1

REPORT INFORMATION
  Report Type: Spontaneous
  Country: US (occurrence: US)
  Receive Date: 20180105
  Receipt Date: 20180105
  Transmission Date: 20180509
  Serious: No
  Sender: FDA-Public Use
  Company Number: None

PATIENT
  Age: 81 Year
  Sex: Female
  Weight: 87.09 kg

DRUGS (6)
  1. LOSARTAN. [Concomitant]
     Active Substance: LOSARTAN
  2. VITAMIN D [Concomitant]
     Active Substance: CHOLECALCIFEROL
  3. CARVEDILOL. [Concomitant]
     Active Substance: CARVEDILOL
  4. ATORVASTATIN [Concomitant]
     Active Substance: ATORVASTATIN
  5. ELIQUIS [Suspect]
     Active Substance: APIXABAN
     Indication: ATRIAL FIBRILLATION
     Dosage: DATES OF USE - BACK ON WARFARIN OC: 6/5/2017
     Route: 048
     Dates: start: 20160809, end: 201702
  6. CALCIUM + D [Concomitant]

REACTIONS (7)
  - Back pain [None]
  - Anal haemorrhage [None]
  - Rash [None]
  - Refusal of treatment by patient [None]
  - Dysstasia [None]
  - Arthritis [None]
  - Therapy change [None]

NARRATIVE: CASE EVENT DATE: 201702
